FAERS Safety Report 6127813-2 (Version None)
Quarter: 2009Q1

REPORT INFORMATION
  Report Type: 
  Country: None (occurrence: None)
  Receive Date: 20090320
  Receipt Date: 20090320
  Transmission Date: 20090719
  Serious: Yes (Other)
  Sender: FDA-Public Use
  Company Number: None

PATIENT
  Age: 41 Year
  Sex: Female
  Weight: 50.3 kg

DRUGS (1)
  1. DAPTOMYCIN [Suspect]
     Indication: ARTHRITIS INFECTIVE
     Dosage: 400 MG IV QD
     Route: 042
     Dates: start: 20090319

REACTIONS (3)
  - HYPERHIDROSIS [None]
  - INFUSION RELATED REACTION [None]
  - PALPITATIONS [None]
